FAERS Safety Report 8564381-X (Version None)
Quarter: 2012Q3

REPORT INFORMATION
  Report Type: 
  Country: None (occurrence: None)
  Receive Date: 20120803
  Receipt Date: 20120727
  Transmission Date: 20120928
  Serious: Yes (Death, Hospitalization, Other)
  Sender: FDA-Public Use
  Company Number: FR-ASTELLAS-2012US006613

PATIENT
  Age: 75 Year
  Sex: Female

DRUGS (10)
  1. EMEND [Concomitant]
     Dosage: 80 MG, UNKNOWN/D
     Dates: start: 20120614
  2. GEMZAR [Concomitant]
     Indication: PRODUCT USED FOR UNKNOWN INDICATION
     Dosage: 11 CYCLES
     Route: 065
     Dates: start: 20110711
  3. CARBOPLATIN [Suspect]
     Indication: ADENOCARCINOMA
     Dosage: 279 MG, UNKNOWN/D
     Route: 042
     Dates: start: 20120613, end: 20120613
  4. EMEND [Concomitant]
     Indication: PRODUCT USED FOR UNKNOWN INDICATION
     Dosage: 125 MG, UNKNOWN/D
     Route: 065
     Dates: start: 20120614
  5. TARCEVA [Suspect]
     Indication: ADENOCARCINOMA
     Dosage: 150 MG, UID/QD
     Route: 048
     Dates: start: 20100723, end: 20120624
  6. NEULASTA [Concomitant]
     Indication: PRODUCT USED FOR UNKNOWN INDICATION
     Dosage: 6 MG, UNKNOWN/D
     Route: 065
     Dates: start: 20120615
  7. SOLU-MEDROL [Concomitant]
     Indication: PRODUCT USED FOR UNKNOWN INDICATION
     Dosage: 80 MG, UNKNOWN/D
     Dates: start: 20120615
  8. ALIMTA [Suspect]
     Indication: ADENOCARCINOMA
     Dosage: 765 MG, UNKNOWN/D
     Route: 042
     Dates: start: 20120613, end: 20120613
  9. ZOPHREN                            /00955302/ [Concomitant]
     Indication: PRODUCT USED FOR UNKNOWN INDICATION
     Dosage: 8 MG, UNKNOWN/D
     Route: 065
  10. CISPLATIN [Concomitant]
     Indication: PRODUCT USED FOR UNKNOWN INDICATION
     Dosage: UNK
     Route: 065

REACTIONS (4)
  - DEATH [None]
  - APLASIA [None]
  - CREATININE RENAL CLEARANCE ABNORMAL [None]
  - SEPTIC SHOCK [None]
